FAERS Safety Report 9276608 (Version 1)
Quarter: 2013Q2

REPORT INFORMATION
  Report Type: Spontaneous
  Country: US (occurrence: US)
  Receive Date: 20130507
  Receipt Date: 20130507
  Transmission Date: 20140414
  Serious: No
  Sender: FDA-Public Use
  Company Number: US-ASTRAZENECA-2013SE29540

PATIENT
  Sex: Female

DRUGS (2)
  1. RHINOCORT AQUA [Suspect]
     Route: 045
     Dates: start: 20130423
  2. RHINOCORT AQUA [Suspect]
     Dosage: ONE DOSE OF RHINOCORT AQUA
     Route: 045

REACTIONS (2)
  - Arthritis [Unknown]
  - Device misuse [Unknown]
